FAERS Safety Report 8897887 (Version 1)
Quarter: 2012Q4

REPORT INFORMATION
  Report Type: 
  Country: US (occurrence: US)
  Receive Date: 20121108
  Receipt Date: 20121108
  Transmission Date: 20130627
  Serious: No
  Sender: FDA-Public Use
  Company Number: US-AMGEN-USASP2012024542

PATIENT
  Age: 40 Year
  Sex: Female

DRUGS (7)
  1. ENBREL [Suspect]
     Indication: RHEUMATOID ARTHRITIS
     Dosage: 50 mg, qwk
     Route: 058
  2. DICLOFENAC [Concomitant]
     Dosage: 100 mg, UNK
     Route: 048
  3. PREDNISONE [Concomitant]
     Dosage: 20 mg, UNK
     Route: 048
  4. TRAMADOL HCL [Concomitant]
     Dosage: 50 mg, UNK
     Route: 048
  5. VITAMIN D /00107901/ [Concomitant]
     Route: 048
  6. FOLIC ACID [Concomitant]
     Dosage: 1 mg, UNK
     Route: 048
  7. FISH OIL [Concomitant]
     Route: 048

REACTIONS (1)
  - Injection site reaction [Unknown]
